FAERS Safety Report 10511201 (Version 1)
Quarter: 2014Q4

REPORT INFORMATION
  Report Type: Spontaneous
  Country: US (occurrence: None)
  Receive Date: 20141009
  Receipt Date: 20141009
  Transmission Date: 20150528
  Serious: Yes (Life-Threatening, Hospitalization)
  Sender: FDA-Public Use
  Company Number: None

PATIENT
  Age: 82 Year
  Sex: Female
  Weight: 68 kg

DRUGS (20)
  1. LEVEMIR [Concomitant]
     Active Substance: INSULIN DETEMIR
  2. AMIODERME [Concomitant]
  3. FERROUS SULFATE [Concomitant]
     Active Substance: FERROUS SULFATE\FERROUS SULFATE, DRIED
  4. ATANOPROST [Concomitant]
  5. PERIODACE [Concomitant]
  6. RIVAROXABAN 15 MG JANSSEN [Suspect]
     Active Substance: RIVAROXABAN
     Indication: ATRIAL FIBRILLATION
     Dosage: PRIOR TO ADMISSION, 15 MG, DAILY, PO
     Route: 048
  7. OXYBUTYRIN [Concomitant]
  8. AMPICILLIN [Concomitant]
     Active Substance: AMPICILLIN
  9. OMEPRAZOLE. [Concomitant]
     Active Substance: OMEPRAZOLE
  10. PRAVACHOL [Concomitant]
     Active Substance: PRAVASTATIN SODIUM
  11. EXALON [Concomitant]
  12. ASPIRIN. [Concomitant]
     Active Substance: ASPIRIN
  13. CLONIDINE. [Concomitant]
     Active Substance: CLONIDINE
  14. ACTOS [Concomitant]
     Active Substance: PIOGLITAZONE HYDROCHLORIDE
  15. METOPROLOL [Concomitant]
     Active Substance: METOPROLOL
  16. HYDRILIZAINE [Concomitant]
  17. KEPPRA [Concomitant]
     Active Substance: LEVETIRACETAM
  18. JAMUCILA [Concomitant]
  19. MULTIVITAMIN [Concomitant]
     Active Substance: VITAMINS
  20. XARELTO [Concomitant]
     Active Substance: RIVAROXABAN

REACTIONS (5)
  - Haematoma [None]
  - Cerebrovascular accident [None]
  - Fall [None]
  - Head injury [None]
  - Subarachnoid haemorrhage [None]

NARRATIVE: CASE EVENT DATE: 20140108
